FAERS Safety Report 4269553-0 (Version None)
Quarter: 2004Q1

REPORT INFORMATION
  Report Type: 
  Country: None (occurrence: None)
  Receive Date: 20040113
  Receipt Date: 20040106
  Transmission Date: 20041129
  Serious: Yes (Other)
  Sender: FDA-Public Use
  Company Number: US-BRISTOL-MYERS SQUIBB COMPANY-12471421

PATIENT
  Age: 10 Decade
  Sex: Female

DRUGS (1)
  1. TEQUIN [Suspect]
     Indication: PNEUMONIA
     Route: 042
     Dates: start: 20040105, end: 20040105

REACTIONS (1)
  - SUPRAVENTRICULAR TACHYCARDIA [None]
